FAERS Safety Report 24377904 (Version 1)
Quarter: 2024Q3

REPORT INFORMATION
  Report Type: Spontaneous
  Country: US (occurrence: None)
  Receive Date: 20240927
  Receipt Date: 20240927
  Transmission Date: 20241016
  Serious: Yes (Hospitalization)
  Sender: Public
  Company Number: None

PATIENT
  Age: 76 Year
  Sex: Male
  Weight: 98 kg

DRUGS (1)
  1. APIXABAN [Suspect]
     Active Substance: APIXABAN
     Indication: Atrial fibrillation
     Dosage: 5.00 MG TWICE A DAY ORAL?
     Route: 048

REACTIONS (5)
  - Gastrointestinal haemorrhage [None]
  - Haemoglobin decreased [None]
  - Wrong technique in product usage process [None]
  - Product use issue [None]
  - Therapy cessation [None]

NARRATIVE: CASE EVENT DATE: 20240105
